FAERS Safety Report 7946383-7 (Version None)
Quarter: 2011Q4

REPORT INFORMATION
  Report Type: 
  Country: None (occurrence: None)
  Receive Date: 20111129
  Receipt Date: 20111122
  Transmission Date: 20120403
  Serious: Yes (Hospitalization)
  Sender: FDA-Public Use
  Company Number: SE-MERCK-1109SWE00046

PATIENT
  Sex: Female
  Weight: 94 kg

DRUGS (7)
  1. JANUVIA [Suspect]
     Indication: DIABETES MELLITUS
     Route: 048
     Dates: start: 20110908, end: 20110922
  2. HYDROCHLOROTHIAZIDE AND IRBESARTAN [Concomitant]
     Indication: BLOOD PRESSURE
     Route: 048
  3. ROSUVASTATIN CALCIUM [Concomitant]
     Indication: BLOOD CHOLESTEROL
     Route: 048
  4. NITROGLYCERIN [Concomitant]
     Route: 065
  5. WARFARIN SODIUM [Concomitant]
     Indication: ANTICOAGULANT THERAPY
     Route: 048
  6. CYANOCOBALAMIN [Concomitant]
     Indication: VITAMIN SUPPLEMENTATION
     Route: 048
  7. BISOPROLOL FUMARATE [Concomitant]
     Indication: BLOOD PRESSURE
     Route: 048

REACTIONS (5)
  - RESPIRATORY DISTRESS [None]
  - DYSARTHRIA [None]
  - PARAESTHESIA ORAL [None]
  - SWOLLEN TONGUE [None]
  - HYPERSENSITIVITY [None]
